FAERS Safety Report 20298379 (Version 2)
Quarter: 2022Q1

REPORT INFORMATION
  Report Type: Report from Study
  Country: CA (occurrence: CA)
  Receive Date: 20220105
  Receipt Date: 20220303
  Transmission Date: 20220423
  Serious: Yes (Hospitalization, Other)
  Sender: FDA-Public Use
  Company Number: CA-CELGENE-CAN-20211209156

PATIENT
  Age: 83 Year
  Sex: Female
  Weight: 51 kg

DRUGS (1)
  1. REBLOZYL [Suspect]
     Active Substance: LUSPATERCEPT-AAMT
     Indication: Myelodysplastic syndrome
     Route: 065

REACTIONS (2)
  - Cerebrovascular accident [Unknown]
  - Cystitis [Unknown]

NARRATIVE: CASE EVENT DATE: 20211216
